FAERS Safety Report 4889774-3 (Version None)
Quarter: 2006Q1

REPORT INFORMATION
  Report Type: 
  Country: None (occurrence: None)
  Receive Date: 20060124
  Receipt Date: 20051003
  Transmission Date: 20060701
  Serious: Yes (Hospitalization, Other)
  Sender: FDA-Public Use
  Company Number: US-MERCK-0510USA02695

PATIENT
  Sex: Female

DRUGS (1)
  1. VIOXX [Suspect]
     Route: 048

REACTIONS (3)
  - ATRIOVENTRICULAR BLOCK FIRST DEGREE [None]
  - ENCEPHALOPATHY [None]
  - ISCHAEMIC STROKE [None]
